FAERS Safety Report 6756372-6 (Version None)
Quarter: 2010Q2

REPORT INFORMATION
  Report Type: 
  Country: None (occurrence: None)
  Receive Date: 20100604
  Receipt Date: 20100527
  Transmission Date: 20101027
  Serious: Yes (Other)
  Sender: FDA-Public Use
  Company Number: US-BAYER-201018496NA

PATIENT
  Age: 58 Year
  Sex: Male

DRUGS (9)
  1. NEXAVAR [Suspect]
     Indication: HEPATIC NEOPLASM MALIGNANT
     Route: 048
     Dates: start: 20100305, end: 20100308
  2. COLACE [Concomitant]
  3. COMPAZINE [Concomitant]
  4. DILAUDID [Concomitant]
  5. LISINOPRIL AND HYDROCHLOROTHIAZIDE [Concomitant]
  6. MARINOL [Concomitant]
  7. MIRALAX [Concomitant]
  8. NICOTINE [Concomitant]
  9. OXYCONTIN [Concomitant]

REACTIONS (6)
  - APHAGIA [None]
  - ASTHENIA [None]
  - MALAISE [None]
  - MOOD SWINGS [None]
  - PALPITATIONS [None]
  - SUICIDAL IDEATION [None]
